FAERS Safety Report 11466049 (Version 1)
Quarter: 2015Q3

REPORT INFORMATION
  Report Type: Spontaneous
  Country: US (occurrence: US)
  Receive Date: 20150907
  Receipt Date: 20150907
  Transmission Date: 20151125
  Serious: Yes (Other)
  Sender: FDA-Public Use
  Company Number: US-TAKEDA-2014TUS010207

PATIENT

DRUGS (7)
  1. METFORMIN [Concomitant]
     Active Substance: METFORMIN HYDROCHLORIDE
     Dosage: 500MG- 2 TABS TWICE A DAY; UNK
  2. LEVEMIR [Concomitant]
     Active Substance: INSULIN DETEMIR
     Dosage: 25 IU, BID, AT BRECKFAST AND AT BEDTIME
  3. NOVOLOG [Concomitant]
     Active Substance: INSULIN ASPART
     Indication: DIABETES MELLITUS
     Dosage: 20 UNITS AT BREAKFAST, 10-15UNITS AT LUNCH AND 25UNITS AT DINNER
  4. ACTOS [Suspect]
     Active Substance: PIOGLITAZONE HYDROCHLORIDE
     Indication: TYPE 2 DIABETES MELLITUS
     Dosage: 15MG THRICE A WEEK TO START- WAS TAKING 45MG EVERYDAY WHEN IT WAS DISCONTINUED; UNK
     Route: 048
     Dates: start: 200810, end: 201110
  5. GLUCOPHAGE [Concomitant]
     Active Substance: METFORMIN HYDROCHLORIDE
     Dosage: 500MG- 2 TABS TWICE A DAY; UNK
  6. ENALAPRIL [Concomitant]
     Active Substance: ENALAPRIL
     Indication: DIABETES MELLITUS
     Dosage: 2.5 MG, QD
  7. BYETTA [Concomitant]
     Active Substance: EXENATIDE
     Dosage: UNK
     Dates: end: 201004

REACTIONS (1)
  - Bladder cancer [Unknown]

NARRATIVE: CASE EVENT DATE: 20140217
